FAERS Safety Report 13415221 (Version 2)
Quarter: 2017Q2

REPORT INFORMATION
  Report Type: Report from Study
  Country: US (occurrence: US)
  Receive Date: 20170407
  Receipt Date: 20170424
  Transmission Date: 20170830
  Serious: Yes (Hospitalization)
  Sender: FDA-Public Use
  Company Number: US-JNJFOC-20170116380

PATIENT
  Age: 76 Year
  Sex: Male

DRUGS (11)
  1. PROVENTIL [Concomitant]
     Active Substance: ALBUTEROL
  2. NEURONTIN [Concomitant]
     Active Substance: GABAPENTIN
  3. LOVASTATIN. [Concomitant]
     Active Substance: LOVASTATIN
  4. ALPRAZOLAM. [Concomitant]
     Active Substance: ALPRAZOLAM
  5. IMBRUVICA [Suspect]
     Active Substance: IBRUTINIB
     Indication: CHRONIC LYMPHOCYTIC LEUKAEMIA
     Route: 048
     Dates: start: 20170105
  6. IMBRUVICA [Suspect]
     Active Substance: IBRUTINIB
     Indication: CHRONIC LYMPHOCYTIC LEUKAEMIA
     Route: 048
     Dates: start: 20170106, end: 201701
  7. METOPROLOL. [Concomitant]
     Active Substance: METOPROLOL
  8. PRILOSEC [Concomitant]
     Active Substance: OMEPRAZOLE MAGNESIUM
  9. NIFEREX [Concomitant]
     Active Substance: IRON\POLYSACCHARIDES
  10. BACTRIM [Concomitant]
     Active Substance: SULFAMETHOXAZOLE\TRIMETHOPRIM
  11. ASPIRIN. [Concomitant]
     Active Substance: ASPIRIN

REACTIONS (15)
  - Burning sensation [Unknown]
  - Lacrimation increased [Not Recovered/Not Resolved]
  - Weight decreased [Unknown]
  - Fatigue [Not Recovered/Not Resolved]
  - Decreased appetite [Not Recovered/Not Resolved]
  - White blood cell count abnormal [Not Recovered/Not Resolved]
  - Dizziness [Not Recovered/Not Resolved]
  - Muscle spasms [Not Recovered/Not Resolved]
  - Abdominal pain [Not Recovered/Not Resolved]
  - Asthenia [Not Recovered/Not Resolved]
  - Cardiomegaly [Unknown]
  - Headache [Unknown]
  - Nausea [Not Recovered/Not Resolved]
  - Rhinorrhoea [Not Recovered/Not Resolved]
  - Vision blurred [Not Recovered/Not Resolved]

NARRATIVE: CASE EVENT DATE: 201701
